FAERS Safety Report 21384723 (Version 1)
Quarter: 2022Q3

REPORT INFORMATION
  Report Type: Spontaneous
  Country: US (occurrence: US)
  Receive Date: 20220928
  Receipt Date: 20220928
  Transmission Date: 20221027
  Serious: No
  Sender: FDA-Public Use
  Company Number: US-PFIZER INC-202201135636

PATIENT
  Age: 9 Year
  Sex: Male
  Weight: 26.31 kg

DRUGS (2)
  1. GENOTROPIN [Suspect]
     Active Substance: SOMATROPIN
     Indication: Blood growth hormone
     Dosage: STOMACH, LEG, AND BOTTOM
     Dates: start: 20210504
  2. GENOTROPIN [Suspect]
     Active Substance: SOMATROPIN
     Dosage: STOMACH, LEG, AND BOTTOM

REACTIONS (3)
  - Device mechanical issue [Unknown]
  - Poor quality device used [Unknown]
  - Wrong technique in device usage process [Unknown]
